FAERS Safety Report 5835236-6 (Version None)
Quarter: 2008Q3

REPORT INFORMATION
  Report Type: 
  Country: None (occurrence: None)
  Receive Date: 20080806
  Receipt Date: 20080804
  Transmission Date: 20090109
  Serious: Yes (Other)
  Sender: FDA-Public Use
  Company Number: US-BAYER-200822108NA

PATIENT
  Age: 48 Year
  Sex: Female
  Weight: 64 kg

DRUGS (2)
  1. AVELOX [Suspect]
     Indication: URINARY TRACT INFECTION
     Route: 048
     Dates: start: 20070101
  2. AVELOX [Suspect]
     Route: 048
     Dates: start: 20070101

REACTIONS (2)
  - INJECTION SITE THROMBOSIS [None]
  - THROMBOSIS [None]
